FAERS Safety Report 4341447-1 (Version None)
Quarter: 2004Q2

REPORT INFORMATION
  Report Type: 
  Country: None (occurrence: None)
  Receive Date: 20040414
  Receipt Date: 20040401
  Transmission Date: 20050107
  Serious: Yes (Hospitalization)
  Sender: FDA-Public Use
  Company Number: 204294

PATIENT
  Age: 66 Year
  Sex: Female

DRUGS (10)
  1. HERCEPTIN [Suspect]
     Indication: BREAST CANCER METASTATIC
     Dosage: SEE IMAGE
     Route: 042
     Dates: start: 20031127, end: 20031127
  2. HERCEPTIN [Suspect]
     Indication: BREAST CANCER METASTATIC
     Dosage: SEE IMAGE
     Route: 042
     Dates: start: 20031219, end: 20040108
  3. DOCETAXEL (DOCETAXEL) [Suspect]
     Indication: BREAST CANCER METASTATIC
     Dosage: SEE IMAGE
     Route: 042
     Dates: start: 20031127, end: 20031127
  4. DOCETAXEL (DOCETAXEL) [Suspect]
     Indication: BREAST CANCER METASTATIC
     Dosage: SEE IMAGE
     Route: 042
     Dates: start: 20031219, end: 20040108
  5. ASPIRIN [Concomitant]
  6. SIMVASTATIN [Concomitant]
  7. ATENOLOL [Concomitant]
  8. OMEPRAZOLE [Concomitant]
  9. METFORMIN HCL [Concomitant]
  10. UNKNOWN MEDICATIONS (GENERIC COMPONENT(S) NOT KNOWN) [Concomitant]

REACTIONS (2)
  - FEBRILE NEUTROPENIA [None]
  - INFECTION [None]
